FAERS Safety Report 5799975-8 (Version None)
Quarter: 2008Q3

REPORT INFORMATION
  Report Type: 
  Country: None (occurrence: None)
  Receive Date: 20080703
  Receipt Date: 20080623
  Transmission Date: 20090109
  Serious: Yes (Hospitalization)
  Sender: FDA-Public Use
  Company Number: GB-AMGEN-UK289760

PATIENT
  Sex: Male
  Weight: 87 kg

DRUGS (2)
  1. PANITUMUMAB [Suspect]
     Indication: COLORECTAL CANCER
     Route: 042
     Dates: start: 20080125
  2. IRINOTECAN [Suspect]
     Route: 042
     Dates: start: 20080125

REACTIONS (2)
  - BURSITIS [None]
  - HYPOMAGNESAEMIA [None]
